FAERS Safety Report 6763328-6 (Version None)
Quarter: 2010Q2

REPORT INFORMATION
  Report Type: 
  Country: None (occurrence: None)
  Receive Date: 20100610
  Receipt Date: 20100420
  Transmission Date: 20101027
  Serious: Yes (Hospitalization, Other)
  Sender: FDA-Public Use
  Company Number: US-BAYER-200934042NA

PATIENT
  Age: 26 Year
  Sex: Female

DRUGS (2)
  1. YAZ [Suspect]
     Indication: DRUG USE FOR UNKNOWN INDICATION
     Dosage: YAZ USED IN 2008, UNSURE OF THE DATES JUNE-NOVEMBER
     Route: 048
     Dates: start: 20080101, end: 20080101
  2. YASMIN [Suspect]
     Indication: DRUG USE FOR UNKNOWN INDICATION
     Route: 048
     Dates: start: 20081001, end: 20081101

REACTIONS (5)
  - CHOLECYSTECTOMY [None]
  - DEEP VEIN THROMBOSIS [None]
  - MENTAL DISORDER [None]
  - PAIN [None]
  - PULMONARY EMBOLISM [None]
